FAERS Safety Report 15868501 (Version 2)
Quarter: 2019Q1

REPORT INFORMATION
  Report Type: Report from Study
  Country: None (occurrence: GB)
  Receive Date: 20190125
  Receipt Date: 20190204
  Transmission Date: 20190417
  Serious: Yes (Hospitalization, Other)
  Sender: FDA-Public Use
  Company Number: GB-ABBVIE-19S-167-2616703-00

PATIENT
  Age: 75 Year
  Sex: Female

DRUGS (1)
  1. DUODOPA [Suspect]
     Active Substance: CARBIDOPA\LEVODOPA
     Indication: PRODUCT USED FOR UNKNOWN INDICATION
     Dosage: 100ML CASSETTE 1 DAY
     Route: 050

REACTIONS (17)
  - Device dislocation [Unknown]
  - Device leakage [Unknown]
  - Wrong technique in device usage process [Not Recovered/Not Resolved]
  - Medical device site discharge [Recovered/Resolved]
  - Hospitalisation [Unknown]
  - Malaise [Unknown]
  - Unresponsive to stimuli [Unknown]
  - Incorrect dose administered by device [Unknown]
  - Device use issue [Unknown]
  - Fall [Unknown]
  - Device leakage [Unknown]
  - Device connection issue [Recovered/Resolved]
  - Confusional state [Unknown]
  - Incorrect route of product administration [Unknown]
  - Gastrointestinal stoma complication [Unknown]
  - Device occlusion [Recovered/Resolved]
  - Stoma site discharge [Unknown]

NARRATIVE: CASE EVENT DATE: 2018
